FAERS Safety Report 10538941 (Version 1)
Quarter: 2014Q4

REPORT INFORMATION
  Report Type: Spontaneous
  Country: US (occurrence: US)
  Receive Date: 20141023
  Receipt Date: 20141023
  Transmission Date: 20150529
  Serious: Yes (Hospitalization, Other)
  Sender: FDA-Public Use
  Company Number: US-GLAXOSMITHKLINE-US2014GSK010618

PATIENT
  Age: 24 Year
  Sex: Female

DRUGS (5)
  1. OMEPRAZOLE. [Concomitant]
     Active Substance: OMEPRAZOLE
  2. ZITHROMAX [Concomitant]
     Active Substance: AZITHROMYCIN DIHYDRATE
  3. ADVAIR HFA [Suspect]
     Active Substance: FLUTICASONE PROPIONATE\SALMETEROL XINAFOATE
     Indication: ASTHMA
     Dosage: 1 PUFF(S), BID
     Route: 055
     Dates: start: 201408
  4. LEXAPRO [Concomitant]
     Active Substance: ESCITALOPRAM OXALATE
  5. PREDNISONE. [Concomitant]
     Active Substance: PREDNISONE

REACTIONS (5)
  - Malaise [Recovering/Resolving]
  - Exposure during pregnancy [Unknown]
  - Adverse event [Unknown]
  - Pulmonary congestion [Recovering/Resolving]
  - Wheezing [Recovering/Resolving]

NARRATIVE: CASE EVENT DATE: 201408
